FAERS Safety Report 14338064 (Version 3)
Quarter: 2021Q4

REPORT INFORMATION
  Report Type: Report from Study
  Country: FR (occurrence: FR)
  Receive Date: 20171229
  Receipt Date: 20211020
  Transmission Date: 20220303
  Serious: Yes (Other)
  Sender: FDA-Public Use
  Company Number: FR-SHIRE-FR201729669

PATIENT
  Age: 3 Year
  Sex: Female

DRUGS (22)
  1. DEXAMETHASONE [Suspect]
     Active Substance: DEXAMETHASONE
     Indication: Acute lymphocytic leukaemia
     Dosage: 4 MG, QD
     Route: 048
     Dates: start: 20170802, end: 20171001
  2. DEXAMETHASONE [Suspect]
     Active Substance: DEXAMETHASONE
     Dosage: 4 MG, 1X/DAY:QD
     Route: 048
     Dates: start: 20170802, end: 20171001
  3. DEXAMETHASONE [Suspect]
     Active Substance: DEXAMETHASONE
     Dosage: 4 MG, UNK
     Route: 048
     Dates: start: 20170903, end: 20170903
  4. METHOTREXATE [Suspect]
     Active Substance: METHOTREXATE
     Indication: Acute lymphocytic leukaemia
     Dosage: 12 MG, 1X/DAY:QD
     Route: 037
     Dates: start: 20170803, end: 20170928
  5. METHOTREXATE [Suspect]
     Active Substance: METHOTREXATE
     Dosage: 12 MG, 1X/DAY:QD
     Route: 037
     Dates: start: 20170803, end: 20170928
  6. METHOTREXATE [Suspect]
     Active Substance: METHOTREXATE
     Dosage: 12 MG, 1X/DAY:QD
     Route: 037
     Dates: start: 20170831, end: 20170831
  7. MERCAPTOPURINE [Suspect]
     Active Substance: MERCAPTOPURINE
     Indication: Acute lymphocytic leukaemia
     Dosage: 32 MG, 1X/DAY:QD
     Route: 048
     Dates: start: 20170802, end: 20170919
  8. MERCAPTOPURINE [Suspect]
     Active Substance: MERCAPTOPURINE
     Dosage: 32 MG, 1X/DAY:QD
     Route: 048
     Dates: start: 20170802, end: 20170919
  9. MERCAPTOPURINE [Suspect]
     Active Substance: MERCAPTOPURINE
     Dosage: 32 MG, UNK
     Route: 048
     Dates: start: 20170830, end: 20170830
  10. VINCRISTINE [Suspect]
     Active Substance: VINCRISTINE
     Indication: Acute lymphocytic leukaemia
     Dosage: 0.9 MG, 1X/DAY:QD
     Route: 042
     Dates: start: 20171004, end: 20171004
  11. VINCRISTINE [Suspect]
     Active Substance: VINCRISTINE
     Dosage: 0.95 MG, 1X/DAY:QD
     Route: 042
     Dates: start: 20170830, end: 20170830
  12. VINCRISTINE [Suspect]
     Active Substance: VINCRISTINE
     Dosage: 0.93 MG, 1X/DAY:QD
     Route: 042
     Dates: start: 20170906, end: 20170906
  13. VINCRISTINE [Suspect]
     Active Substance: VINCRISTINE
     Dosage: 0.9 MG, 1X/DAY:QD
     Route: 042
     Dates: start: 20170802, end: 20170802
  14. VINCRISTINE [Suspect]
     Active Substance: VINCRISTINE
     Dosage: 0.9 MG, 1X/DAY:QD
     Route: 042
     Dates: start: 20170809, end: 20170809
  15. PEGASPARGASE [Suspect]
     Active Substance: PEGASPARGASE
     Indication: Acute lymphocytic leukaemia
     Dosage: 1575 IU, QD
     Route: 048
     Dates: start: 20170809, end: 20171004
  16. PEGASPARGASE [Suspect]
     Active Substance: PEGASPARGASE
     Dosage: 1575 IU, 1X/DAY:QD
     Route: 042
     Dates: start: 20170809, end: 20170809
  17. PEGASPARGASE [Suspect]
     Active Substance: PEGASPARGASE
     Dosage: 1575 IU, 1X/DAY:QD
     Route: 042
     Dates: start: 20170906, end: 20170906
  18. PEGASPARGASE [Suspect]
     Active Substance: PEGASPARGASE
     Dosage: 1575 IU, 1X/DAY:QD
     Route: 042
     Dates: start: 20171004, end: 20171004
  19. METHOTREXATE [Suspect]
     Active Substance: METHOTREXATE
     Indication: Acute lymphocytic leukaemia
     Dosage: 15 MILLIGRAM, QW
     Route: 048
     Dates: start: 20170810, end: 20170907
  20. VINCRISTINE [Suspect]
     Active Substance: VINCRISTINE
     Indication: Acute lymphocytic leukaemia
     Dosage: 0.9 MILLIGRAM, QD
     Route: 048
     Dates: start: 20170802, end: 20171004
  21. DUPHALAC [Concomitant]
     Active Substance: LACTULOSE
     Indication: Constipation
     Dosage: UNK
  22. SULFAMETHOXAZOLE AND TRIMETHOPRIM [Concomitant]
     Active Substance: SULFAMETHOXAZOLE\TRIMETHOPRIM
     Indication: Antifungal prophylaxis
     Dosage: UNK

REACTIONS (1)
  - Hypertriglyceridaemia [Recovered/Resolved]

NARRATIVE: CASE EVENT DATE: 20170913
